FAERS Safety Report 25554100 (Version 1)
Quarter: 2025Q3

REPORT INFORMATION
  Report Type: Report from Study
  Country: US (occurrence: US)
  Receive Date: 20250715
  Receipt Date: 20250715
  Transmission Date: 20251020
  Serious: Yes (Other)
  Sender: ACADIA PHARMACEUTICALS
  Company Number: US-ACADIA PHARMACEUTICALS INC.-ACA-2025-PIM-008215

PATIENT
  Sex: Male

DRUGS (22)
  1. NUPLAZID [Suspect]
     Active Substance: PIMAVANSERIN TARTRATE
     Indication: Parkinson^s disease
     Dosage: 34 MILLIGRAM, QD
     Route: 048
     Dates: start: 20250304
  2. ALLOPURINOL [Concomitant]
     Active Substance: ALLOPURINOL
  3. RIVASTIGMINE [Concomitant]
     Active Substance: RIVASTIGMINE
  4. REXULTI [Concomitant]
     Active Substance: BREXPIPRAZOLE
  5. QUETIAPINE [Concomitant]
     Active Substance: QUETIAPINE
  6. DONEPEZIL [Concomitant]
     Active Substance: DONEPEZIL
  7. MEMANTINE [Concomitant]
     Active Substance: MEMANTINE
  8. MIRABEGRON [Concomitant]
     Active Substance: MIRABEGRON
  9. AMANTADINE [Concomitant]
     Active Substance: AMANTADINE
  10. FINASTERIDE [Concomitant]
     Active Substance: FINASTERIDE
  11. MUPIROCIN [Concomitant]
     Active Substance: MUPIROCIN
  12. IMIQUIMOD [Concomitant]
     Active Substance: IMIQUIMOD
  13. TAMSULOSIN [Concomitant]
     Active Substance: TAMSULOSIN
  14. IBUPROFEN [Concomitant]
     Active Substance: IBUPROFEN
  15. DICYCLOMINE HYDROCHLORIDE [Concomitant]
     Active Substance: DICYCLOMINE HYDROCHLORIDE
  16. PANTOPRAZOLE [Concomitant]
     Active Substance: PANTOPRAZOLE
  17. HYDROCHLOROTHIAZIDE\LISINOPRIL [Concomitant]
     Active Substance: HYDROCHLOROTHIAZIDE\LISINOPRIL
  18. PREGABALIN [Concomitant]
     Active Substance: PREGABALIN
  19. FLUOROURACIL [Concomitant]
     Active Substance: FLUOROURACIL
  20. CREXONT [Concomitant]
     Active Substance: CARBIDOPA\LEVODOPA
  21. CARBIDOPA LEVODOPA [Concomitant]
     Active Substance: CARBIDOPA\LEVODOPA
  22. ROSUVASTATIN [Concomitant]
     Active Substance: ROSUVASTATIN

REACTIONS (1)
  - Hallucination [Unknown]
